FAERS Safety Report 22086510 (Version 1)
Quarter: 2023Q1

REPORT INFORMATION
  Report Type: Spontaneous
  Country: CN (occurrence: None)
  Receive Date: 20230312
  Receipt Date: 20230312
  Transmission Date: 20230418
  Serious: Yes (Hospitalization)
  Sender: FDA-Public Use
  Company Number: CN-ROCHE-3302449

PATIENT
  Age: 44 Year
  Sex: Female
  Weight: 63 kg

DRUGS (4)
  1. CAMRELIZUMAB [Suspect]
     Active Substance: CAMRELIZUMAB
     Indication: Ovarian cancer
     Route: 041
     Dates: start: 20220923, end: 20220923
  2. PACLITAXEL [Suspect]
     Active Substance: PACLITAXEL
     Indication: Ovarian cancer
     Route: 041
     Dates: start: 20220924, end: 20220924
  3. AVASTIN [Suspect]
     Active Substance: BEVACIZUMAB
     Indication: Ovarian cancer
     Route: 041
     Dates: start: 20220928, end: 20220928
  4. CISPLATIN [Suspect]
     Active Substance: CISPLATIN
     Indication: Ovarian cancer
     Route: 041
     Dates: start: 20220926, end: 20220926

REACTIONS (1)
  - Myelosuppression [Recovered/Resolved]

NARRATIVE: CASE EVENT DATE: 20220929
